FAERS Safety Report 23221744 (Version 1)
Quarter: 2023Q4

REPORT INFORMATION
  Report Type: Spontaneous
  Country: US (occurrence: US)
  Receive Date: 20231123
  Receipt Date: 20231123
  Transmission Date: 20240110
  Serious: No
  Sender: FDA-Public Use
  Company Number: US-002147023-NVSC2023US180273

PATIENT
  Sex: Female
  Weight: 180 kg

DRUGS (4)
  1. DOXYCYCLINE [Suspect]
     Active Substance: DOXYCYCLINE
     Indication: Rosacea
     Dosage: UNK
     Route: 065
  2. FOLIC ACID [Suspect]
     Active Substance: FOLIC ACID
     Indication: Rosacea
     Dosage: UNK
     Route: 065
  3. METHOTREXATE [Suspect]
     Active Substance: METHOTREXATE
     Indication: Rosacea
     Dosage: UNK
     Route: 065
  4. TRIAMCINOLONE [Suspect]
     Active Substance: TRIAMCINOLONE
     Indication: Rosacea
     Dosage: UNK
     Route: 065

REACTIONS (15)
  - Skin haemorrhage [Unknown]
  - Pruritus [Unknown]
  - Erythema [Unknown]
  - Skin exfoliation [Unknown]
  - Perioral dermatitis [Recovered/Resolved]
  - Psoriasis [Unknown]
  - Eczema [Unknown]
  - Dry skin [Unknown]
  - Dermatitis atopic [Not Recovered/Not Resolved]
  - Tenderness [Unknown]
  - Rash [Unknown]
  - Skin fissures [Unknown]
  - Rosacea [Unknown]
  - Treatment failure [Unknown]
  - Drug ineffective [Unknown]
